FAERS Safety Report 11886363 (Version 2)
Quarter: 2016Q1

REPORT INFORMATION
  Report Type: Spontaneous
  Country: US (occurrence: US)
  Receive Date: 20160104
  Receipt Date: 20160302
  Transmission Date: 20160526
  Serious: No
  Sender: FDA-Public Use
  Company Number: US-ACTELION PHARMACEUTICALS US, INC.-A-US2015-122875

PATIENT
  Age: 49 Year
  Sex: Female

DRUGS (2)
  1. VELETRI [Suspect]
     Active Substance: EPOPROSTENOL
     Indication: PULMONARY ARTERIAL HYPERTENSION
     Dosage: 74 NG/KG, PER MIN
     Route: 042
     Dates: start: 20131022
  2. COUMADIN [Concomitant]
     Active Substance: WARFARIN SODIUM

REACTIONS (9)
  - Weight decreased [Unknown]
  - Device leakage [Unknown]
  - Fatigue [Unknown]
  - Heart rate increased [Unknown]
  - Pain in jaw [Unknown]
  - Nasopharyngitis [Unknown]
  - Ageusia [Unknown]
  - Diarrhoea [Unknown]
  - Palpitations [Unknown]
